FAERS Safety Report 12233845 (Version 1)
Quarter: 2016Q2

REPORT INFORMATION
  Report Type: Spontaneous
  Country: FR (occurrence: FR)
  Receive Date: 20160404
  Receipt Date: 20160404
  Transmission Date: 20160815
  Serious: Yes (Death)
  Sender: FDA-Public Use
  Company Number: FR-ROCHE-1732216

PATIENT
  Age: 62 Year
  Sex: Female

DRUGS (14)
  1. CERTICAN [Suspect]
     Active Substance: EVEROLIMUS
     Indication: IMMUNOSUPPRESSION
     Dosage: DF=0.5MG
     Route: 048
     Dates: start: 2012
  2. TAHOR [Concomitant]
     Active Substance: ATORVASTATIN CALCIUM
  3. CORTANCYL [Suspect]
     Active Substance: PREDNISONE
     Indication: IMMUNOSUPPRESSION
     Dosage: DF=0.5 MG
     Route: 048
     Dates: start: 2012
  4. BISOPROLOL [Concomitant]
     Active Substance: BISOPROLOL
  5. CELLCEPT [Suspect]
     Active Substance: MYCOPHENOLATE MOFETIL\MYCOPHENOLATE MOFETIL HYDROCHLORIDE
     Indication: IMMUNOSUPPRESSION
     Dosage: DF??=500 MG.
     Route: 048
     Dates: start: 20010730
  6. PANTOPRAZOLE [Concomitant]
     Active Substance: PANTOPRAZOLE SODIUM
  7. ATORVASTATINE [Concomitant]
     Active Substance: ATORVASTATIN
  8. NEORAL [Suspect]
     Active Substance: CYCLOSPORINE
     Indication: IMMUNOSUPPRESSION
     Route: 048
     Dates: start: 20010730, end: 2012
  9. NEORECORMON [Concomitant]
     Active Substance: ERYTHROPOIETIN
  10. CYCLOPHOSPHAMIDE. [Concomitant]
     Active Substance: CYCLOPHOSPHAMIDE
  11. OMEPRAZOLE. [Concomitant]
     Active Substance: OMEPRAZOLE
  12. MABTHERA [Suspect]
     Active Substance: RITUXIMAB
     Indication: DIFFUSE LARGE B-CELL LYMPHOMA
     Route: 042
     Dates: start: 20151027
  13. ETOPOSIDE. [Concomitant]
     Active Substance: ETOPOSIDE
  14. DOXORUBICINE [Concomitant]
     Active Substance: DOXORUBICIN

REACTIONS (4)
  - Gastric perforation [Fatal]
  - Drug ineffective [Fatal]
  - Diffuse large B-cell lymphoma [Fatal]
  - Peritonitis [Fatal]

NARRATIVE: CASE EVENT DATE: 201507
